FAERS Safety Report 5815129-0 (Version None)
Quarter: 2008Q3

REPORT INFORMATION
  Report Type: 
  Country: None (occurrence: None)
  Receive Date: 20080718
  Receipt Date: 20080710
  Transmission Date: 20090109
  Serious: Yes (Hospitalization, Other)
  Sender: FDA-Public Use
  Company Number: PH-WYE-H04540008

PATIENT
  Sex: Female
  Weight: 51.5 kg

DRUGS (7)
  1. AMPICILLIN AND SULBACTAM [Suspect]
     Indication: SKIN INFECTION
     Route: 042
     Dates: start: 20080607, end: 20080609
  2. ACETAMINOPHEN [Concomitant]
     Indication: PYREXIA
     Route: 042
     Dates: start: 20080609, end: 20080609
  3. CALCIUM [Concomitant]
     Indication: HYPOCALCAEMIA
     Route: 065
     Dates: start: 20080608, end: 20080609
  4. AMLODIPINE [Concomitant]
     Indication: HYPERTENSION
     Route: 065
     Dates: start: 20080609, end: 20080609
  5. METOPROLOL TARTRATE [Concomitant]
     Indication: HYPERTENSION
     Route: 065
     Dates: start: 20080609, end: 20080609
  6. ACETAMINOPHEN [Concomitant]
     Route: 065
     Dates: start: 20080609, end: 20080609
  7. TRAMADOL HCL [Concomitant]
     Indication: PAIN
     Dosage: 375 MG Q6H PRN
     Route: 065
     Dates: start: 20080607, end: 20080609

REACTIONS (2)
  - LIVER DISORDER [None]
  - METABOLIC ENCEPHALOPATHY [None]
